FAERS Safety Report 6219058-2 (Version None)
Quarter: 2009Q2

REPORT INFORMATION
  Report Type: 
  Country: None (occurrence: None)
  Receive Date: 20090608
  Receipt Date: 20090602
  Transmission Date: 20091009
  Serious: Yes (Hospitalization)
  Sender: FDA-Public Use
  Company Number: US-GILEAD-2009-0022372

PATIENT
  Sex: Male
  Weight: 0.73 kg

DRUGS (7)
  1. LETAIRIS [Suspect]
     Route: 064
     Dates: end: 20080828
  2. SILDENAFIL CITRATE [Concomitant]
  3. NORVASC [Concomitant]
  4. HYDROCHLOROTHIAZIDE [Concomitant]
  5. PLAVIX [Concomitant]
  6. PREDNISONE [Concomitant]
  7. RANITIDINE [Concomitant]

REACTIONS (2)
  - IMMATURE RESPIRATORY SYSTEM [None]
  - PREMATURE BABY [None]
